FAERS Safety Report 8933437 (Version 3)
Quarter: 2016Q1

REPORT INFORMATION
  Report Type: Report from Study
  Country: US (occurrence: US)
  Receive Date: 20121128
  Receipt Date: 20160105
  Transmission Date: 20160526
  Serious: Yes (Death, Hospitalization, Other)
  Sender: FDA-Public Use
  Company Number: US-ROCHE-1140091

PATIENT
  Age: 70 Year
  Sex: Male
  Weight: 81.72 kg

DRUGS (5)
  1. ZELBORAF [Suspect]
     Active Substance: VEMURAFENIB
     Indication: BONE CANCER
     Route: 048
     Dates: start: 20121122, end: 201212
  2. ZELBORAF [Suspect]
     Active Substance: VEMURAFENIB
     Indication: METASTASES TO LYMPH NODES
     Route: 048
     Dates: start: 201208
  3. ZELBORAF [Suspect]
     Active Substance: VEMURAFENIB
     Indication: BONE CANCER
  4. ZELBORAF [Suspect]
     Active Substance: VEMURAFENIB
     Indication: METASTATIC MALIGNANT MELANOMA
     Dosage: 720 MG EVERY AM AND 480 MG EVERY PM
     Route: 048
     Dates: start: 201204, end: 201208
  5. ZELBORAF [Suspect]
     Active Substance: VEMURAFENIB
     Indication: MALIGNANT MELANOMA
     Dosage: 3 TABLETS IN MORNING, 2 TABLETS AT BEDTIME
     Route: 048
     Dates: start: 201208

REACTIONS (12)
  - Weight decreased [Not Recovered/Not Resolved]
  - Dysgeusia [Not Recovered/Not Resolved]
  - Skin neoplasm excision [Unknown]
  - Sunburn [Unknown]
  - Seizure [Recovered/Resolved]
  - Metastases to central nervous system [Fatal]
  - Skin mass [Unknown]
  - Decreased appetite [Not Recovered/Not Resolved]
  - Abdominal distension [Not Recovered/Not Resolved]
  - Squamous cell carcinoma [Unknown]
  - Fatigue [Not Recovered/Not Resolved]
  - Rash [Unknown]

NARRATIVE: CASE EVENT DATE: 201205
